FAERS Safety Report 7795606-6 (Version None)
Quarter: 2011Q4

REPORT INFORMATION
  Report Type: 
  Country: None (occurrence: None)
  Receive Date: 20111004
  Receipt Date: 20110930
  Transmission Date: 20120403
  Serious: Yes (Other)
  Sender: FDA-Public Use
  Company Number: US-GLAXOSMITHKLINE-A0941083A

PATIENT
  Age: 64 Year
  Sex: Male

DRUGS (3)
  1. GLYBURIDE [Concomitant]
  2. JANUVIA [Concomitant]
  3. AVANDIA [Suspect]
     Indication: BLOOD GLUCOSE INCREASED
     Dosage: 8MG UNKNOWN
     Route: 048

REACTIONS (10)
  - MALAISE [None]
  - PYREXIA [None]
  - LOSS OF CONSCIOUSNESS [None]
  - BLOOD GLUCOSE DECREASED [None]
  - PRODUCT QUALITY ISSUE [None]
  - DRUG ADMINISTRATION ERROR [None]
  - DIARRHOEA [None]
  - DIABETES MELLITUS INADEQUATE CONTROL [None]
  - VOMITING [None]
  - INCOHERENT [None]
